FAERS Safety Report 7606486-3 (Version None)
Quarter: 2011Q3

REPORT INFORMATION
  Report Type: 
  Country: None (occurrence: None)
  Receive Date: 20110713
  Receipt Date: 20100211
  Transmission Date: 20111222
  Serious: Yes (Death, Other)
  Sender: FDA-Public Use
  Company Number: US-BAYER-201013518NA

PATIENT
  Age: 66 Year
  Sex: Male
  Weight: 106 kg

DRUGS (18)
  1. LOVASTATIN [Concomitant]
     Dosage: 20 MG, HS
     Route: 048
  2. NIASPAN [Concomitant]
     Dosage: 500MG 2 TABLES AT BEDTIME
     Route: 048
  3. DIOVAN [Concomitant]
     Dosage: 160 MG, QD
     Route: 048
  4. TRASYLOL [Suspect]
     Indication: CAROTID ENDARTERECTOMY
  5. ACETYLSALICYLIC ACID SRT [Concomitant]
     Dosage: 325 MG, QD
     Route: 048
  6. MANNITOL [Concomitant]
     Dosage: 25 GRAMS
     Dates: start: 20080212, end: 20080212
  7. MILRINONE [Concomitant]
     Dosage: 0.5MCG/KG/MG
     Route: 042
     Dates: start: 20080212, end: 20080212
  8. AMIODARONE HCL [Concomitant]
     Dosage: 33ML/HR
     Route: 042
     Dates: start: 20080212, end: 20080212
  9. ALBUMIN (HUMAN) [Concomitant]
     Dosage: 25 GRAMS
     Dates: start: 20080212, end: 20080212
  10. PROTAMINE SULFATE [Concomitant]
     Dosage: 300MG
     Route: 042
     Dates: start: 20080212, end: 20080212
  11. FENTANYL-100 [Concomitant]
     Dosage: 500MCG
     Route: 042
     Dates: start: 20080212, end: 20080212
  12. HEPARIN [Concomitant]
     Dosage: 61,000 UNITS
     Dates: start: 20080212, end: 20080212
  13. TRASYLOL [Suspect]
     Indication: PRODUCT USED FOR UNKNOWN INDICATION
     Dosage: TEST DOSE - 1ML 200 ML PUMP PRIME DOSE
     Dates: start: 20080212, end: 20080212
  14. BENADRYL [Concomitant]
     Dosage: 50MG
     Dates: start: 20080212, end: 20080212
  15. TRASYLOL [Suspect]
     Indication: ENDARTERECTOMY
     Dosage: LOADING DOSE - 200ML THEN 50ML/HR INFUSION
  16. GLYBURIDE AND METFORMIN HYDROCHLORIDE [Concomitant]
     Dosage: 2.5/500 MG TWICE A DAY
     Route: 048
  17. LASIX [Concomitant]
     Dosage: 40MG
     Dates: start: 20080212, end: 20080212
  18. HEPARIN [Concomitant]
     Dosage: 5,000-15,000 UNITS
     Route: 042
     Dates: start: 20080212, end: 20080212

REACTIONS (11)
  - RENAL IMPAIRMENT [None]
  - STRESS [None]
  - FEAR [None]
  - UNEVALUABLE EVENT [None]
  - MYOCARDIAL INFARCTION [None]
  - INJURY [None]
  - RENAL INJURY [None]
  - RENAL FAILURE [None]
  - ANXIETY [None]
  - PAIN [None]
  - ANHEDONIA [None]
